FAERS Safety Report 6983406-6 (Version None)
Quarter: 2010Q3

REPORT INFORMATION
  Report Type: 
  Country: None (occurrence: None)
  Receive Date: 20100914
  Receipt Date: 20100914
  Transmission Date: 20110219
  Serious: No
  Sender: FDA-Public Use
  Company Number: None

PATIENT
  Sex: Female
  Weight: 65 kg

DRUGS (3)
  1. ENBREL [Suspect]
     Indication: PSORIATIC ARTHROPATHY
     Dosage: 25ML 2X WEEKLY SQ
     Route: 058
     Dates: start: 20051101, end: 20080215
  2. ENBREL [Suspect]
     Indication: RAYNAUD'S PHENOMENON
     Dosage: 25ML 2X WEEKLY SQ
     Route: 058
     Dates: start: 20051101, end: 20080215
  3. ENBREL [Suspect]
     Indication: SPONDYLOARTHROPATHY
     Dosage: 25ML 2X WEEKLY SQ
     Route: 058
     Dates: start: 20051101, end: 20080215

REACTIONS (3)
  - BREAST CANCER IN SITU [None]
  - LUNG INFECTION [None]
  - RADICAL MASTECTOMY [None]
